FAERS Safety Report 17633018 (Version 1)
Quarter: 2020Q2

REPORT INFORMATION
  Report Type: Spontaneous
  Country: US (occurrence: US)
  Receive Date: 20200406
  Receipt Date: 20200406
  Transmission Date: 20200713
  Serious: Yes (Other)
  Sender: FDA-Public Use
  Company Number: US-SA-2020SA085259

PATIENT
  Age: 70 Year
  Sex: Female

DRUGS (2)
  1. MULTAQ [Suspect]
     Active Substance: DRONEDARONE
     Indication: ATRIAL FIBRILLATION
     Dosage: 200 MG, QD
     Dates: start: 20200326
  2. MULTAQ [Suspect]
     Active Substance: DRONEDARONE
     Dosage: 200 MG, BID

REACTIONS (2)
  - Blood pressure decreased [Unknown]
  - Heart rate decreased [Unknown]

NARRATIVE: CASE EVENT DATE: 20200402
